FAERS Safety Report 5308321-5 (Version None)
Quarter: 2007Q2

REPORT INFORMATION
  Report Type: 
  Country: None (occurrence: None)
  Receive Date: 20070420
  Receipt Date: 20070412
  Transmission Date: 20071010
  Serious: Yes (Hospitalization, Other)
  Sender: FDA-Public Use
  Company Number: 163-20785-06120451

PATIENT
  Age: 49 Year
  Sex: Female

DRUGS (3)
  1. THALIDOMIDE [Suspect]
     Indication: MYELOFIBROSIS
     Dosage: 50-100 MG, DAILY, ORAL
     Route: 048
     Dates: start: 20061117, end: 20070213
  2. COUMADIN [Concomitant]
  3. XANAX [Concomitant]

REACTIONS (6)
  - CARDIOMEGALY [None]
  - DISEASE PROGRESSION [None]
  - DRUG INEFFECTIVE [None]
  - HEPATOSPLENOMEGALY [None]
  - MYELOFIBROSIS [None]
  - PAIN [None]
